FAERS Safety Report 16928336 (Version 1)
Quarter: 2019Q4

REPORT INFORMATION
  Report Type: Spontaneous
  Country: US (occurrence: US)
  Receive Date: 20191017
  Receipt Date: 20191017
  Transmission Date: 20200122
  Serious: No
  Sender: FDA-Public Use
  Company Number: US-ALLERGAN-1907178US

PATIENT
  Age: 71 Year
  Sex: Male

DRUGS (4)
  1. RECTIV [Suspect]
     Active Substance: NITROGLYCERIN
     Dosage: UNK
     Route: 065
     Dates: start: 2018, end: 2018
  2. HYPERLIPIDEMIA MEDICATIONS [Concomitant]
     Route: 065
  3. HIGH BLOOD PRESSURE MEDICATIONS [Concomitant]
     Route: 065
  4. RECTIV [Suspect]
     Active Substance: NITROGLYCERIN
     Indication: PROCTALGIA
     Dosage: UNK
     Route: 065
     Dates: start: 201902, end: 201902

REACTIONS (2)
  - Heart rate increased [Recovered/Resolved]
  - Incorrect product administration duration [Unknown]

NARRATIVE: CASE EVENT DATE: 2018
